FAERS Safety Report 19444932 (Version 2)
Quarter: 2021Q3

REPORT INFORMATION
  Report Type: Spontaneous
  Country: US (occurrence: US)
  Receive Date: 20210622
  Receipt Date: 20210805
  Transmission Date: 20211014
  Serious: No
  Sender: FDA-Public Use
  Company Number: US-ASTRAZENECA-2021A485122

PATIENT
  Age: 28717 Day
  Sex: Male

DRUGS (1)
  1. BYDUREON BCISE [Suspect]
     Active Substance: EXENATIDE
     Indication: GLYCOSYLATED HAEMOGLOBIN
     Route: 058

REACTIONS (4)
  - Device malfunction [Unknown]
  - Device leakage [Unknown]
  - Weight decreased [Recovered/Resolved]
  - Incorrect dose administered by device [Not Recovered/Not Resolved]

NARRATIVE: CASE EVENT DATE: 20210503
